FAERS Safety Report 5037008-1 (Version None)
Quarter: 2006Q2

REPORT INFORMATION
  Report Type: 
  Country: None (occurrence: None)
  Receive Date: 20060623
  Receipt Date: 20060614
  Transmission Date: 20061013
  Serious: Yes (Hospitalization, Other)
  Sender: FDA-Public Use
  Company Number: 2006070230

PATIENT
  Age: 53 Year
  Sex: Male

DRUGS (6)
  1. XALATAN [Suspect]
     Indication: GLAUCOMA
     Dosage: 1 DROP (1 D)
     Dates: start: 20020322
  2. XALCOM [Suspect]
     Indication: ANGLE CLOSURE GLAUCOMA
     Dates: start: 20040401
  3. PILOCARPINE HYDROCHLORIDE [Suspect]
     Dates: start: 20010101
  4. DIAMOX [Suspect]
     Dates: start: 20010101
  5. BRIMONIDINE TARTRATE [Concomitant]
  6. ACETAZOLAMIDE [Concomitant]

REACTIONS (3)
  - ABDOMINAL PAIN UPPER [None]
  - THROMBOCYTHAEMIA [None]
  - TRANSAMINASES INCREASED [None]
